FAERS Safety Report 9729446 (Version 1)
Quarter: 2013Q4

REPORT INFORMATION
  Report Type: Spontaneous
  Country: US (occurrence: US)
  Receive Date: 20131204
  Receipt Date: 20131204
  Transmission Date: 20140711
  Serious: No
  Sender: FDA-Public Use
  Company Number: US-GILEAD-2009-0021427

PATIENT
  Age: 70 Year
  Sex: Female

DRUGS (7)
  1. LETAIRIS [Suspect]
     Indication: PULMONARY ARTERIAL HYPERTENSION
     Route: 048
     Dates: start: 200901
  2. REVATIO [Concomitant]
  3. LASIX [Concomitant]
  4. AMLODIPINE [Concomitant]
  5. LABETALOL [Concomitant]
  6. CYMBALTA [Concomitant]
  7. PREVACID [Concomitant]

REACTIONS (1)
  - Dry mouth [Not Recovered/Not Resolved]
